FAERS Safety Report 23828214 (Version 1)
Quarter: 2024Q2

REPORT INFORMATION
  Report Type: Report from Study
  Country: US (occurrence: US)
  Receive Date: 20240508
  Receipt Date: 20240508
  Transmission Date: 20240716
  Serious: Yes (Other)
  Sender: FDA-Public Use
  Company Number: US-UCBSA-2024021786

PATIENT
  Sex: Female

DRUGS (1)
  1. CERTOLIZUMAB PEGOL [Suspect]
     Active Substance: CERTOLIZUMAB PEGOL
     Indication: Rheumatoid arthritis
     Dosage: 400 MILLIGRAM, EV 4 WEEKS
     Dates: start: 20231024

REACTIONS (13)
  - Pneumonia [Unknown]
  - Rheumatoid arthritis [Unknown]
  - Pulmonary mass [Unknown]
  - Gastrointestinal disorder [Unknown]
  - Pruritus [Unknown]
  - Scratch [Unknown]
  - Swelling face [Unknown]
  - Erythema [Unknown]
  - Skin exfoliation [Unknown]
  - Skin ulcer [Recovering/Resolving]
  - Sinusitis [Unknown]
  - Cough [Unknown]
  - Skin infection [Recovering/Resolving]

NARRATIVE: CASE EVENT DATE: 20240101
